FAERS Safety Report 15786486 (Version 1)
Quarter: 2018Q4

REPORT INFORMATION
  Report Type: Spontaneous
  Country: US (occurrence: US)
  Receive Date: 20181212
  Receipt Date: 20181212
  Transmission Date: 20190205
  Serious: Yes (Hospitalization)
  Sender: FDA-Public Use
  Company Number: None

PATIENT
  Age: 60 Year
  Sex: Male
  Weight: 84.7 kg

DRUGS (1)
  1. TEMOZOLOMIDE. [Suspect]
     Active Substance: TEMOZOLOMIDE
     Dates: end: 20181116

REACTIONS (14)
  - Influenza [None]
  - Confusional state [None]
  - Weight decreased [None]
  - Loss of personal independence in daily activities [None]
  - Neoplasm recurrence [None]
  - Headache [None]
  - Visual acuity reduced [None]
  - Decreased appetite [None]
  - Clumsiness [None]
  - Atrial fibrillation [None]
  - Feeling hot [None]
  - Gait disturbance [None]
  - Brain neoplasm [None]
  - Night sweats [None]

NARRATIVE: CASE EVENT DATE: 20181127
